FAERS Safety Report 4713548-7 (Version None)
Quarter: 2005Q3

REPORT INFORMATION
  Report Type: 
  Country: None (occurrence: None)
  Receive Date: 20050713
  Receipt Date: 20050706
  Transmission Date: 20060218
  Serious: Yes (Hospitalization)
  Sender: FDA-Public Use
  Company Number: FR-BRISTOL-MYERS SQUIBB COMPANY-13029871

PATIENT
  Age: 27 Year
  Sex: Female

DRUGS (8)
  1. SUSTIVA [Suspect]
     Indication: HIV INFECTION
     Route: 048
     Dates: start: 20020808
  2. VIRACEPT [Suspect]
     Dates: start: 20020808
  3. EPIVIR [Suspect]
     Dates: start: 20020902
  4. COVERSYL [Suspect]
     Dates: start: 20030101
  5. NITRODERM [Concomitant]
     Dates: start: 20050101
  6. UN-ALFA [Concomitant]
  7. AMLODIPINE BESYLATE [Concomitant]
  8. LASIX [Concomitant]

REACTIONS (21)
  - AORTIC VALVE INCOMPETENCE [None]
  - ARTERIAL DISORDER [None]
  - CARDIAC MURMUR [None]
  - CARDIOMEGALY [None]
  - CARDIOMYOPATHY [None]
  - COUGH [None]
  - CYTOLYTIC HEPATITIS [None]
  - DILATATION ATRIAL [None]
  - DYSPNOEA [None]
  - HAEMOPTYSIS [None]
  - HEPATIC PAIN [None]
  - MITRAL VALVE INCOMPETENCE [None]
  - MITRAL VALVE STENOSIS [None]
  - MYOCARDITIS [None]
  - NOCTURNAL DYSPNOEA [None]
  - PLEURAL EFFUSION [None]
  - PROCEDURAL HYPERTENSION [None]
  - PULMONARY HYPERTENSION [None]
  - PULMONARY OEDEMA [None]
  - SPLENOMEGALY [None]
  - TACHYCARDIA [None]
